FAERS Safety Report 8955275 (Version 1)
Quarter: 2012Q4

REPORT INFORMATION
  Report Type: Spontaneous
  Country: CA (occurrence: None)
  Receive Date: 20121130
  Receipt Date: 20121130
  Transmission Date: 20130627
  Serious: Yes (Other)
  Sender: FDA-Public Use
  Company Number: DSA_60926_2012

PATIENT
  Age: 70 Year
  Sex: Female

DRUGS (4)
  1. VASOTEC [Suspect]
  2. VASOTEC [Suspect]
  3. METFORMIN [Concomitant]
  4. HYDROCHLOROTHIAZIDE [Concomitant]

REACTIONS (2)
  - Hypertension [None]
  - Drug ineffective [None]
